FAERS Safety Report 4526952-7 (Version None)
Quarter: 2004Q4

REPORT INFORMATION
  Report Type: 
  Country: None (occurrence: None)
  Receive Date: 20041116
  Receipt Date: 20040910
  Transmission Date: 20050328
  Serious: No
  Sender: FDA-Public Use
  Company Number: 200410330BBE

PATIENT
  Age: 68 Year
  Sex: Male

DRUGS (1)
  1. PROLASTIN [Suspect]
     Dosage: 60 MG/KH QW, INTRAVENOUS
     Route: 042

REACTIONS (1)
  - CELLULITIS [None]
